FAERS Safety Report 17830646 (Version 6)
Quarter: 2020Q2

REPORT INFORMATION
  Report Type: Spontaneous
  Country: AR (occurrence: AR)
  Receive Date: 20200527
  Receipt Date: 20200622
  Transmission Date: 20200714
  Serious: Yes (Other)
  Sender: FDA-Public Use
  Company Number: AR-MYLANLABS-2020M1034835

PATIENT
  Age: 22 Year
  Sex: Female

DRUGS (2)
  1. LORAZEPAM. [Concomitant]
     Active Substance: LORAZEPAM
     Dosage: UNK
  2. LAPENAX [Suspect]
     Active Substance: CLOZAPINE
     Indication: PRODUCT USED FOR UNKNOWN INDICATION
     Dosage: 500 MILLIGRAM, QD
     Dates: start: 20090203, end: 20200526

REACTIONS (13)
  - Hypochromasia [Not Recovered/Not Resolved]
  - Red blood cell sedimentation rate increased [Not Recovered/Not Resolved]
  - Monocyte count increased [Recovered/Resolved]
  - Leukopenia [Recovered/Resolved]
  - Haematocrit decreased [Recovered/Resolved]
  - Haemoglobin decreased [Recovering/Resolving]
  - Neutropenia [Recovered/Resolved]
  - Anisocytosis [Not Recovered/Not Resolved]
  - Cytomegalovirus infection [Unknown]
  - Red blood cell count decreased [Recovered/Resolved]
  - Monocyte count decreased [Unknown]
  - Eosinophil count decreased [Recovered/Resolved]
  - Lymphocyte count increased [Not Recovered/Not Resolved]

NARRATIVE: CASE EVENT DATE: 20200401
